FAERS Safety Report 9868040 (Version 1)
Quarter: 2014Q1

REPORT INFORMATION
  Report Type: Spontaneous
  Country: US (occurrence: None)
  Receive Date: 20140203
  Receipt Date: 20140203
  Transmission Date: 20141002
  Serious: Yes (Life-Threatening)
  Sender: FDA-Public Use
  Company Number: None

PATIENT
  Age: 83 Year
  Sex: Female
  Weight: 55 kg

DRUGS (7)
  1. LIDOCAINE [Suspect]
     Indication: SURGERY
     Dates: start: 20140130
  2. XANAX [Concomitant]
  3. ALPHAGN P [Concomitant]
  4. CARTEOLOL [Concomitant]
  5. LEVOTHYROXINE [Concomitant]
  6. OMEPRAZOLE [Suspect]
  7. WARFARIN [Concomitant]

REACTIONS (6)
  - Headache [None]
  - Retching [None]
  - Unresponsive to stimuli [None]
  - Bradycardia [None]
  - Pulseless electrical activity [None]
  - Cardiac arrest [None]
